FAERS Safety Report 8463636-7 (Version None)
Quarter: 2012Q2

REPORT INFORMATION
  Report Type: 
  Country: None (occurrence: None)
  Receive Date: 20120625
  Receipt Date: 20120612
  Transmission Date: 20120825
  Serious: No
  Sender: FDA-Public Use
  Company Number: US-ASTRAZENECA-2012SE39302

PATIENT
  Age: 84 Year
  Sex: Female
  Weight: 72.6 kg

DRUGS (8)
  1. SIMVASTATIN [Concomitant]
  2. LIPITOR [Concomitant]
  3. MULTIVITAMIN [Concomitant]
  4. ASPIRIN [Concomitant]
  5. FISH OIL [Concomitant]
  6. CRESTOR [Suspect]
     Route: 048
     Dates: start: 20110101
  7. VITAMIN D [Concomitant]
  8. VITAMIN B-12 [Concomitant]

REACTIONS (3)
  - BODY HEIGHT DECREASED [None]
  - PRURITUS GENERALISED [None]
  - MACULAR OEDEMA [None]
